FAERS Safety Report 10562817 (Version 1)
Quarter: 2014Q4

REPORT INFORMATION
  Report Type: Other
  Country: US (occurrence: US)
  Receive Date: 20141104
  Receipt Date: 20141104
  Transmission Date: 20150529
  Serious: Yes (Hospitalization)
  Sender: FDA-Public Use
  Company Number: US-ENDO PHARMACEUTICALS INC-DOXY20140002

PATIENT
  Age: 82 Year
  Sex: Female

DRUGS (1)
  1. DOXYCYCLINE HYCLATE 100MG [Suspect]
     Active Substance: DOXYCYCLINE HYCLATE
     Indication: CELLULITIS
     Dosage: UNK
     Route: 065

REACTIONS (1)
  - Pancreatitis acute [Unknown]
